FAERS Safety Report 13177336 (Version 1)
Quarter: 2017Q1

REPORT INFORMATION
  Report Type: Report from Study
  Country: US (occurrence: US)
  Receive Date: 20170201
  Receipt Date: 20170201
  Transmission Date: 20170428
  Serious: No
  Sender: FDA-Public Use
  Company Number: US-EXELIXIS-CABO-15005839

PATIENT
  Sex: Female

DRUGS (2)
  1. COMETRIQ [Suspect]
     Active Substance: CABOZANTINIB S-MALATE
     Indication: RENAL CANCER
     Dosage: 60 MG, QD
     Route: 048
     Dates: start: 20151120, end: 2015
  2. COMETRIQ [Suspect]
     Active Substance: CABOZANTINIB S-MALATE
     Dosage: 60 MG, QD
     Route: 048
     Dates: start: 2015

REACTIONS (8)
  - Arthralgia [Unknown]
  - Nausea [Unknown]
  - Off label use [Unknown]
  - Malaise [Unknown]
  - Diarrhoea [Unknown]
  - Fatigue [Unknown]
  - Decreased appetite [Unknown]
  - Cystitis [Recovered/Resolved]
